FAERS Safety Report 18519529 (Version 1)
Quarter: 2020Q4

REPORT INFORMATION
  Report Type: Spontaneous
  Country: CN (occurrence: CN)
  Receive Date: 20201118
  Receipt Date: 20201118
  Transmission Date: 20210114
  Serious: Yes (Hospitalization, Other)
  Sender: FDA-Public Use
  Company Number: CN-CASPER PHARMA LLC-2020CAS000588

PATIENT
  Age: 70 Year
  Sex: Female

DRUGS (2)
  1. NEOMYCIN, POLYMYXIN, BACITRACIN, HC [Suspect]
     Active Substance: BACITRACIN ZINC\HYDROCORTISONE\NEOMYCIN SULFATE\POLYMYXIN B SULFATE
     Indication: ACINETOBACTER INFECTION
     Dosage: 25 MILLIGRAM, Q12HOUR
     Route: 042
     Dates: start: 20180224, end: 20180228
  2. MEROPENEM. [Concomitant]
     Active Substance: MEROPENEM
     Indication: ACINETOBACTER INFECTION
     Dosage: 500 MILLIGRAM, Q12HOUR
     Route: 065
     Dates: start: 20180224

REACTIONS (1)
  - Rhabdomyolysis [Recovered/Resolved]
